FAERS Safety Report 12946054 (Version 3)
Quarter: 2017Q3

REPORT INFORMATION
  Report Type: Report from Study
  Country: US (occurrence: US)
  Receive Date: 20161116
  Receipt Date: 20170921
  Transmission Date: 20171127
  Serious: Yes (Death, Other)
  Sender: FDA-Public Use
  Company Number: US-SUN PHARMACEUTICAL INDUSTRIES LTD-2016US-127738

PATIENT
  Age: 5 Decade
  Sex: Male

DRUGS (2)
  1. TEMAZEPAM. [Suspect]
     Active Substance: TEMAZEPAM
     Indication: SLEEP DISORDER
     Dosage: 15-30 MG
     Route: 065
  2. SIMVASTATIN. [Suspect]
     Active Substance: SIMVASTATIN
     Indication: HYPERLIPIDAEMIA
     Dosage: UNK
     Route: 065

REACTIONS (9)
  - Depressed mood [Unknown]
  - Rash [Unknown]
  - Temperature regulation disorder [Unknown]
  - Non-alcoholic fatty liver [Unknown]
  - Cognitive disorder [Unknown]
  - Completed suicide [Fatal]
  - Adjustment disorder [Unknown]
  - Nausea [Unknown]
  - Chest discomfort [Unknown]
